FAERS Safety Report 8985090 (Version 1)
Quarter: 2012Q4

REPORT INFORMATION
  Report Type: 
  Country: CO (occurrence: CO)
  Receive Date: 20121226
  Receipt Date: 20121226
  Transmission Date: 20130627
  Serious: Yes (Other)
  Sender: FDA-Public Use
  Company Number: CO-AMGEN-COLSP2012082342

PATIENT
  Age: 79 Year
  Sex: Male

DRUGS (1)
  1. ENBREL [Suspect]
     Indication: RHEUMATOID ARTHRITIS
     Dosage: UNK
     Dates: start: 201203

REACTIONS (5)
  - Arthropathy [Unknown]
  - Joint prosthesis user [Unknown]
  - Limb prosthesis user [Unknown]
  - Spondylitis [Unknown]
  - Exercise tolerance decreased [Unknown]
